FAERS Safety Report 8939755 (Version 1)
Quarter: 2012Q4

REPORT INFORMATION
  Report Type: 
  Country: US (occurrence: US)
  Receive Date: 20121203
  Receipt Date: 20121203
  Transmission Date: 20130627
  Serious: Yes (Other)
  Sender: FDA-Public Use
  Company Number: US-ABBOTT-12P-163-1015333-00

PATIENT
  Age: 17 Year

DRUGS (2)
  1. HUMIRA [Suspect]
     Indication: CROHN^S DISEASE
     Dosage: Had a few doses
  2. REMICADE [Suspect]
     Indication: CROHN^S DISEASE
     Dosage: Had about 3 infusions
     Route: 042

REACTIONS (1)
  - Thyroid cancer [Unknown]
